FAERS Safety Report 6830761-3 (Version None)
Quarter: 2010Q3

REPORT INFORMATION
  Report Type: 
  Country: None (occurrence: None)
  Receive Date: 20100712
  Receipt Date: 20100628
  Transmission Date: 20110219
  Serious: Yes (Hospitalization, Other)
  Sender: FDA-Public Use
  Company Number: PHHY2010FR42845

PATIENT
  Sex: Female

DRUGS (1)
  1. NEORAL [Suspect]
     Indication: TRANSPLANT

REACTIONS (4)
  - GRAFT VERSUS HOST DISEASE [None]
  - HYPONATRAEMIA [None]
  - PROTEINURIA [None]
  - RENAL TUBULAR DISORDER [None]
